FAERS Safety Report 13947199 (Version 2)
Quarter: 2018Q3

REPORT INFORMATION
  Report Type: Report from Study
  Country: JP (occurrence: JP)
  Receive Date: 20170907
  Receipt Date: 20180815
  Transmission Date: 20181010
  Serious: Yes (Hospitalization)
  Sender: FDA-Public Use
  Company Number: JP-DSJP-DSJ-2017-126922

PATIENT

DRUGS (27)
  1. EDOXABAN [Suspect]
     Active Substance: EDOXABAN TOSYLATE
     Indication: ATRIAL FIBRILLATION
     Dosage: 30 MG, QD
     Route: 048
     Dates: start: 20160804, end: 20170315
  2. FUROSEMIDE. [Concomitant]
     Active Substance: FUROSEMIDE
     Dosage: 40MG/DAY
     Route: 048
     Dates: start: 20170407, end: 20170612
  3. TAKECAB [Concomitant]
     Active Substance: VONOPRAZAN FUMURATE
     Dosage: 10MG/DAY
     Route: 048
     Dates: start: 20170330, end: 20170612
  4. EDOXABAN [Suspect]
     Active Substance: EDOXABAN TOSYLATE
     Dosage: 30 MG, QD
     Route: 048
     Dates: start: 20170317, end: 20170327
  5. BISOPROLOL FUMARATE. [Concomitant]
     Active Substance: BISOPROLOL FUMARATE
     Dosage: 3.75MG/DAY
     Route: 048
     Dates: start: 20170407, end: 20170427
  6. OLMETEC OD [Concomitant]
     Active Substance: OLMESARTAN MEDOXOMIL
     Dosage: 20MG/DAY
     Route: 048
     Dates: end: 20170331
  7. LANSOPRAZOLE. [Concomitant]
     Active Substance: LANSOPRAZOLE
     Dosage: 15MG/DAY
     Route: 048
     Dates: end: 20170328
  8. PREDONINE [Concomitant]
     Active Substance: PREDNISOLONE
     Dosage: 30MG/DAY
     Route: 048
     Dates: start: 20170408, end: 20170409
  9. FEBURIC [Concomitant]
     Active Substance: FEBUXOSTAT
     Dosage: 20MG/DAY
     Route: 048
  10. PICILLIBACTA [Concomitant]
     Active Substance: AMPICILLIN SODIUM\SULBACTAM SODIUM
     Dosage: 4.5G/DAY
     Route: 042
     Dates: start: 20170403, end: 20170408
  11. REBAMIPIDE [Concomitant]
     Active Substance: REBAMIPIDE
     Dosage: 300MG/DAY
     Route: 048
     Dates: start: 20170408, end: 20170415
  12. FOLIAMIN [Concomitant]
     Active Substance: FOLIC ACID
     Dosage: 10MG/DAY
     Route: 048
     Dates: start: 20170221
  13. PREDONINE [Concomitant]
     Active Substance: PREDNISOLONE
     Dosage: 20MG/DAY
     Route: 048
     Dates: start: 20170410, end: 20170411
  14. PLATELETS [Concomitant]
     Active Substance: HUMAN PLATELET, ALLOGENIC
     Dosage: 20 IU/DAY
     Route: 042
     Dates: start: 20170329, end: 20170329
  15. EDOXABAN [Suspect]
     Active Substance: EDOXABAN TOSYLATE
     Dosage: 30 MG, QD
     Route: 048
     Dates: start: 20170402
  16. NIFEDIPINE. [Concomitant]
     Active Substance: NIFEDIPINE
     Dosage: 60MG/DAY
     Route: 048
     Dates: end: 20170331
  17. TENELIA TABLETS 20MG [Concomitant]
     Active Substance: TENELIGLIPTIN
     Dosage: 20MG/DAY
     Route: 048
     Dates: start: 20170114
  18. LEVOFLOXACIN. [Concomitant]
     Active Substance: LEVOFLOXACIN
     Dosage: 500MG/DAY
     Route: 048
     Dates: start: 20170408, end: 20170410
  19. FUROSEMIDE. [Concomitant]
     Active Substance: FUROSEMIDE
     Dosage: 20MG/DAY
     Route: 048
     Dates: start: 20170613, end: 20170710
  20. XARELTO [Concomitant]
     Active Substance: RIVAROXABAN
     Dosage: 15MG/DAY
     Route: 048
     Dates: end: 20160803
  21. BISOPROLOL FUMARATE. [Concomitant]
     Active Substance: BISOPROLOL FUMARATE
     Dosage: 2.5MG/DAY
     Route: 048
     Dates: start: 20170428
  22. FRESH FROZEN PLASMA [Concomitant]
     Active Substance: HUMAN PLASMA
     Dosage: 6 IU/DAY
     Route: 042
     Dates: start: 20170329, end: 20170329
  23. RED BLOOD CELLS [Concomitant]
     Active Substance: HUMAN RED BLOOD CELL
     Dosage: 4 IU/DAY
     Route: 042
     Dates: start: 20170329, end: 20170329
  24. BISOPROLOL FUMARATE. [Concomitant]
     Active Substance: BISOPROLOL FUMARATE
     Indication: ATRIAL FIBRILLATION
     Dosage: 2.5MG/DAY
     Route: 048
     Dates: end: 20170406
  25. PREDONINE [Concomitant]
     Active Substance: PREDNISOLONE
     Dosage: 10MG/DAY
     Route: 048
     Dates: start: 20170412, end: 20170413
  26. PREDONINE [Concomitant]
     Active Substance: PREDNISOLONE
     Dosage: 5MG/DAY
     Route: 048
     Dates: start: 20170414, end: 20170415
  27. ARGAMATE [Concomitant]
     Active Substance: CALCIUM POLYSTYRENE SULFONATE
     Dosage: 25G/DAY
     Route: 048
     Dates: start: 20170410, end: 20170414

REACTIONS (7)
  - Blood potassium increased [Recovered/Resolved]
  - Cholelithiasis [Not Recovered/Not Resolved]
  - Post procedural haemorrhage [Recovered/Resolved]
  - Renal impairment [Not Recovered/Not Resolved]
  - Diabetes mellitus [Recovering/Resolving]
  - Pneumonia [Recovering/Resolving]
  - Pericardial effusion [Recovering/Resolving]

NARRATIVE: CASE EVENT DATE: 20161115
